FAERS Safety Report 24530262 (Version 1)
Quarter: 2024Q4

REPORT INFORMATION
  Report Type: Spontaneous
  Country: PL (occurrence: PL)
  Receive Date: 20241021
  Receipt Date: 20241021
  Transmission Date: 20250114
  Serious: Yes (Life-Threatening, Hospitalization, Other)
  Sender: SANOFI AVENTIS
  Company Number: None

PATIENT
  Age: 70 Year
  Sex: Female
  Weight: 71 kg

DRUGS (1)
  1. OXALIPLATIN [Suspect]
     Active Substance: OXALIPLATIN
     Indication: Colon cancer
     Dosage: 120 MG
     Route: 042
     Dates: start: 20200928, end: 20200928

REACTIONS (3)
  - Pruritus [Unknown]
  - Dyspnoea [Unknown]
  - Cardio-respiratory arrest [Unknown]

NARRATIVE: CASE EVENT DATE: 20200928
